FAERS Safety Report 21374921 (Version 2)
Quarter: 2023Q4

REPORT INFORMATION
  Report Type: Spontaneous
  Country: GB (occurrence: GB)
  Receive Date: 20220926
  Receipt Date: 20231117
  Transmission Date: 20240110
  Serious: Yes (Other)
  Sender: FDA-Public Use
  Company Number: GB-TEVA-2022-GB-2076842

PATIENT
  Age: 38 Year
  Sex: Female

DRUGS (3)
  1. MODAFINIL [Suspect]
     Active Substance: MODAFINIL
     Indication: Chronic fatigue syndrome
     Route: 065
  2. MODAFINIL [Suspect]
     Active Substance: MODAFINIL
     Dosage: IN MORNING
     Route: 065
  3. FLUOXETINE [Concomitant]
     Active Substance: FLUOXETINE HYDROCHLORIDE
     Indication: Bulimia nervosa
     Route: 065

REACTIONS (3)
  - Myalgia [Unknown]
  - Pain [Unknown]
  - Off label use [Unknown]
